FAERS Safety Report 16211832 (Version 1)
Quarter: 2019Q2

REPORT INFORMATION
  Report Type: Spontaneous
  Country: US (occurrence: US)
  Receive Date: 20190418
  Receipt Date: 20190418
  Transmission Date: 20190711
  Serious: Yes (Hospitalization)
  Sender: FDA-Public Use
  Company Number: US-ROCHE-2305656

PATIENT
  Age: 40 Year
  Sex: Female

DRUGS (2)
  1. XELODA [Suspect]
     Active Substance: CAPECITABINE
     Indication: PRODUCT USED FOR UNKNOWN INDICATION
     Route: 048
     Dates: start: 201903
  2. XELODA [Suspect]
     Active Substance: CAPECITABINE
     Dosage: 2 TS 14 ON AND 7 OFF
     Route: 048

REACTIONS (2)
  - Pulmonary oedema [Unknown]
  - Product dose omission [Unknown]

NARRATIVE: CASE EVENT DATE: 20190406
